FAERS Safety Report 23065708 (Version 2)
Quarter: 2023Q4

REPORT INFORMATION
  Report Type: Spontaneous
  Country: CA (occurrence: CA)
  Receive Date: 20231014
  Receipt Date: 20231020
  Transmission Date: 20240109
  Serious: Yes (Other)
  Sender: FDA-Public Use
  Company Number: CA-CELLTRION INC.-2023CA019879

PATIENT

DRUGS (3)
  1. INFLECTRA [Suspect]
     Active Substance: INFLIXIMAB-DYYB
     Indication: Crohn^s disease
     Dosage: 600 MG,EVERY 6 WEEK
     Route: 041
     Dates: start: 20191221
  2. INFLECTRA [Suspect]
     Active Substance: INFLIXIMAB-DYYB
     Dosage: 600 MG,EVERY 6 WEEK
     Route: 041
     Dates: start: 20230817
  3. MESALAMINE [Concomitant]
     Active Substance: MESALAMINE
     Dosage: 2400 MG, 1X/DAY
     Route: 048

REACTIONS (3)
  - Tooth infection [Not Recovered/Not Resolved]
  - Off label use [Unknown]
  - Off label use [Unknown]

NARRATIVE: CASE EVENT DATE: 20230101
